FAERS Safety Report 5418285-1 (Version None)
Quarter: 2007Q3

REPORT INFORMATION
  Report Type: 
  Country: None (occurrence: None)
  Receive Date: 20070817
  Receipt Date: 20070808
  Transmission Date: 20080115
  Serious: Yes (Hospitalization)
  Sender: FDA-Public Use
  Company Number: GB-ROCHE-511716

PATIENT
  Age: 35 Year
  Sex: Female
  Weight: 133.4 kg

DRUGS (23)
  1. XENICAL [Suspect]
     Indication: OBESITY
     Route: 048
     Dates: start: 20070724, end: 20070805
  2. CITALOPRAM [Concomitant]
     Route: 048
  3. IRON SUPPLEMENT NOS [Concomitant]
     Route: 048
  4. MIRTAZAPINE [Concomitant]
     Route: 048
  5. AMITRIPTYLINE HCL [Concomitant]
     Route: 048
  6. ADCAL D3 [Concomitant]
  7. MONTELUKAST SODIUM [Concomitant]
  8. PARACETAMOL [Concomitant]
  9. GAVISCON [Concomitant]
  10. KETOTIFEN FUMARATE [Concomitant]
  11. SENNA [Concomitant]
  12. PREDNISOLONE [Concomitant]
  13. NICORANDIL [Concomitant]
  14. OMEPRAZOLE [Concomitant]
  15. CITRAZINE [Concomitant]
  16. SIMVASTATIN [Concomitant]
  17. GLYCERYL TRINITRATE [Concomitant]
     Dosage: DOSAGE FORM REPORTED AS SPRAY.
     Route: 060
  18. SODIUM CROMOGLICATE [Concomitant]
     Dosage: DOSAGE FORM REPORTED AS SPRAY.
  19. SIMBICORT [Concomitant]
  20. COMBIVENT [Concomitant]
  21. SALBUTAMOL [Concomitant]
     Dosage: DOSAGE FORM REPORTED AS NEBULES.
  22. TRIAMCINOLONE [Concomitant]
     Dosage: DOSAGE FORM REPORTED AS SPRAY.
  23. IPRATROPIUM BROMIDE [Concomitant]
     Dosage: DOSAGE FORM REPORTED AS NEBULES.

REACTIONS (3)
  - ASTHMA [None]
  - CONDITION AGGRAVATED [None]
  - DYSPNOEA [None]
